FAERS Safety Report 9985395 (Version 1)
Quarter: 2014Q1

REPORT INFORMATION
  Report Type: Report from Study
  Country: US (occurrence: US)
  Receive Date: 20140307
  Receipt Date: 20140307
  Transmission Date: 20141002
  Serious: No
  Sender: FDA-Public Use
  Company Number: US-ABBVIE-14P-163-1185781-00

PATIENT
  Age: 33 Year
  Sex: Male

DRUGS (6)
  1. HUMIRA [Suspect]
     Indication: CROHN^S DISEASE
     Dates: start: 20131216, end: 20131216
  2. HUMIRA [Suspect]
  3. LISINOPRIL [Concomitant]
     Indication: HYPERTENSION
  4. PRILOSEC [Concomitant]
     Indication: GASTRIC DISORDER
  5. OXYCODONE [Concomitant]
     Indication: BACK PAIN
     Dosage: 10/325
  6. ROBAXIN [Concomitant]
     Indication: BACK PAIN

REACTIONS (1)
  - Burning sensation [Not Recovered/Not Resolved]
